FAERS Safety Report 15125445 (Version 1)
Quarter: 2018Q3

REPORT INFORMATION
  Report Type: Spontaneous
  Country: ES (occurrence: ES)
  Receive Date: 20180710
  Receipt Date: 20180710
  Transmission Date: 20181010
  Serious: Yes (Other)
  Sender: FDA-Public Use
  Company Number: ES-TEVA-2018-ES-922983

PATIENT
  Sex: Male

DRUGS (1)
  1. PACLITAXEL (2698A) [Suspect]
     Active Substance: PACLITAXEL
     Route: 042
     Dates: start: 20180510, end: 20180510

REACTIONS (4)
  - Tachycardia [Recovered/Resolved]
  - Hypoxia [Recovered/Resolved]
  - Flushing [Recovered/Resolved]
  - Dizziness [Recovered/Resolved]

NARRATIVE: CASE EVENT DATE: 20180510
